FAERS Safety Report 17623529 (Version 3)
Quarter: 2022Q1

REPORT INFORMATION
  Report Type: Spontaneous
  Country: US (occurrence: US)
  Receive Date: 20200403
  Receipt Date: 20220210
  Transmission Date: 20220423
  Serious: Yes (Disabling, Other)
  Sender: FDA-Public Use
  Company Number: US-TEVA-2020-US-1216928

PATIENT
  Age: 49 Year
  Sex: Female
  Weight: 102 kg

DRUGS (9)
  1. DOCETAXEL [Suspect]
     Active Substance: DOCETAXEL
     Indication: Metaplastic breast carcinoma
     Dosage: 100 MG/M2 - 220 MG, FREQUENCY: EVERY THREE WEEKS, NUMBER OF CYCLES: 04
     Route: 065
     Dates: start: 20140321, end: 20140605
  2. DOXORUBICIN [Concomitant]
     Active Substance: DOXORUBICIN
     Indication: Metaplastic breast carcinoma
     Route: 065
  3. CYCLOPHOSPHAMIDE [Concomitant]
     Active Substance: CYCLOPHOSPHAMIDE
     Indication: Metaplastic breast carcinoma
     Route: 065
  4. HYDROCHLOROTHIAZIDE [Concomitant]
     Active Substance: HYDROCHLOROTHIAZIDE
     Dosage: 25 MILLIGRAM DAILY;
     Route: 065
     Dates: start: 2007
  5. LOVASTATIN [Concomitant]
     Active Substance: LOVASTATIN
     Dosage: 40 MILLIGRAM DAILY;
     Route: 065
     Dates: start: 2007
  6. METOPROLOL SUCCINATE [Concomitant]
     Active Substance: METOPROLOL SUCCINATE
     Dosage: 50 MILLIGRAM DAILY;
     Route: 065
     Dates: start: 2007
  7. Amlodipine /Benazpril [Concomitant]
     Dosage: 1 DOSAGE FORMS DAILY; AMLODIPINE 10MG, BENAZPRIL 40MG
     Route: 065
     Dates: start: 2007
  8. GABAPENTIN [Concomitant]
     Active Substance: GABAPENTIN
     Dosage: 33.3333 MILLIGRAM DAILY;
     Route: 065
     Dates: start: 2007
  9. ASPIRIN [Concomitant]
     Active Substance: ASPIRIN
     Dosage: 325 MILLIGRAM DAILY;
     Route: 065
     Dates: start: 2007

REACTIONS (5)
  - Alopecia areata [Not Recovered/Not Resolved]
  - Madarosis [Not Recovered/Not Resolved]
  - Breast cancer recurrent [Unknown]
  - Hair texture abnormal [Not Recovered/Not Resolved]
  - Hair colour changes [Not Recovered/Not Resolved]

NARRATIVE: CASE EVENT DATE: 20141101
